FAERS Safety Report 4294369-9 (Version None)
Quarter: 2004Q1

REPORT INFORMATION
  Report Type: 
  Country: None (occurrence: None)
  Receive Date: 20040211
  Receipt Date: 20040128
  Transmission Date: 20041129
  Serious: Yes (Other)
  Sender: FDA-Public Use
  Company Number: USA040157925

PATIENT
  Sex: Female

DRUGS (8)
  1. EVISTA [Suspect]
     Dates: start: 20000101
  2. MIACALCIN [Concomitant]
  3. CALCIUM [Concomitant]
  4. VITAMIN D [Concomitant]
  5. CENTRUM [Concomitant]
  6. VITAMIN B-12 [Concomitant]
  7. VITAMIN B6 [Concomitant]
  8. FOLIC ACID [Concomitant]

REACTIONS (1)
  - BREAST CANCER [None]
